FAERS Safety Report 8679737 (Version 2)
Quarter: 2012Q4

REPORT INFORMATION
  Report Type: 
  Country: BR (occurrence: BR)
  Receive Date: 20120724
  Receipt Date: 20120830
  Transmission Date: 20130627
  Serious: Yes (Hospitalization, Other)
  Sender: FDA-Public Use
  Company Number: PHHY2012BR062832

PATIENT
  Sex: Female
  Weight: 58 kg

DRUGS (4)
  1. DIOVAN [Suspect]
     Indication: HYPERTENSION
     Dosage: 1 DF (320 mg), QD (in the morning)
     Route: 048
  2. SIMVASTATIN [Concomitant]
     Indication: BLOOD CHOLESTEROL INCREASED
     Dosage: 1 DF (20 mg), A day
     Route: 048
  3. SOMALGIN [Concomitant]
     Indication: ANTICOAGULANT THERAPY
     Dosage: 1 DF (100 mg), A day
     Route: 048
  4. PURAN T4 [Concomitant]
     Indication: THYROID DISORDER
     Dosage: 1 DF (75 mg), A day
     Route: 048

REACTIONS (9)
  - Uterine neoplasm [Recovered/Resolved]
  - Ovarian neoplasm [Recovered/Resolved]
  - Hypertension [Recovered/Resolved]
  - Arterial occlusive disease [Recovered/Resolved]
  - Rheumatoid arthritis [Recovered/Resolved]
  - Glucose tolerance impaired [Recovered/Resolved]
  - Abasia [Recovered/Resolved]
  - Arthropathy [Recovered/Resolved]
  - Arthralgia [Recovered/Resolved]
